FAERS Safety Report 20943212 (Version 2)
Quarter: 2022Q2

REPORT INFORMATION
  Report Type: Spontaneous
  Country: US (occurrence: US)
  Receive Date: 20220610
  Receipt Date: 20220620
  Transmission Date: 20220721
  Serious: Yes (Other)
  Sender: FDA-Public Use
  Company Number: US-EyePoint Pharmaceuticals, Inc.-US-EYP-22-00105

PATIENT
  Sex: Female

DRUGS (1)
  1. DEXYCU [Suspect]
     Active Substance: DEXAMETHASONE
     Indication: Cataract operation
     Dosage: INJECTED INTO THE SULCUS INFERIORLY
     Route: 031
     Dates: start: 202112, end: 202112

REACTIONS (5)
  - Uveitis-glaucoma-hyphaema syndrome [Unknown]
  - Iris disorder [Unknown]
  - Device dislocation [Unknown]
  - Device breakage [Recovered/Resolved]
  - Lens extraction [Recovered/Resolved]

NARRATIVE: CASE EVENT DATE: 20220601
